FAERS Safety Report 9140946 (Version 1)
Quarter: 2013Q1

REPORT INFORMATION
  Report Type: Spontaneous
  Country: FR (occurrence: FR)
  Receive Date: 20130305
  Receipt Date: 20130305
  Transmission Date: 20140127
  Serious: Yes (Life-Threatening, Hospitalization, Other)
  Sender: FDA-Public Use
  Company Number: FR-PFIZER INC-2013072703

PATIENT
  Age: 73 Year
  Sex: Female

DRUGS (12)
  1. TAHOR [Suspect]
     Dosage: UNK
  2. XARELTO [Suspect]
     Dosage: 1 DF(15 MG), DAILY
     Route: 048
     Dates: start: 201301, end: 20130123
  3. INEXIUM [Interacting]
     Dosage: UNK
  4. TRACLEER [Interacting]
     Dosage: 62.5 MG, 2X/DAY
     Route: 048
     Dates: start: 20130118
  5. PREVISCAN [Concomitant]
     Dosage: UNK
  6. TEMERIT [Concomitant]
     Dosage: UNK
  7. KENZEN [Concomitant]
     Dosage: UNK
  8. ALDACTONE [Concomitant]
     Dosage: UNK
  9. LASILIX [Concomitant]
     Dosage: UNK
  10. COLCHIMAX [Concomitant]
     Dosage: UNK
  11. LEXOMIL [Concomitant]
     Dosage: UNK
  12. DAFALGAN [Concomitant]
     Dosage: UNK

REACTIONS (6)
  - Drug interaction [Unknown]
  - Gastrointestinal haemorrhage [Recovered/Resolved]
  - Anaemia [Recovered/Resolved]
  - Dyspnoea [Unknown]
  - Cardiac failure [Unknown]
  - Renal failure acute [Unknown]
